FAERS Safety Report 13689233 (Version 2)
Quarter: 2017Q2

REPORT INFORMATION
  Report Type: Spontaneous
  Country: FR (occurrence: FR)
  Receive Date: 20170626
  Receipt Date: 20170629
  Transmission Date: 20170830
  Serious: Yes (Death, Congenital Anomaly)
  Sender: FDA-Public Use
  Company Number: FR-PFIZER INC-2017276106

PATIENT
  Sex: Female

DRUGS (14)
  1. ATARAX [Suspect]
     Active Substance: HYDROXYZINE HYDROCHLORIDE
     Dosage: UNK
     Route: 064
     Dates: start: 20150220, end: 20150818
  2. PRIMPERAN [Suspect]
     Active Substance: METOCLOPRAMIDE HYDROCHLORIDE
     Dosage: 10 MG, 3X/DAY
     Route: 064
     Dates: start: 20150220, end: 20150818
  3. SODIUM BICARBONATE. [Suspect]
     Active Substance: SODIUM BICARBONATE
     Dosage: 1 G, 2X/DAY
     Route: 064
     Dates: start: 20150220, end: 20150818
  4. SPIRONOLACTONE. [Suspect]
     Active Substance: SPIRONOLACTONE
     Dosage: 2 DF, UNK
     Route: 064
     Dates: end: 20150220
  5. APROVEL [Suspect]
     Active Substance: IRBESARTAN
     Dosage: UNK
     Route: 064
     Dates: end: 20150220
  6. TARDYFERON [Suspect]
     Active Substance: FERROUS SULFATE
     Dosage: 2 DF, DAILY
     Route: 064
     Dates: end: 20150818
  7. ZYMAD [Suspect]
     Active Substance: CHOLECALCIFEROL
     Dosage: 20000 IU, MONTHLY
     Route: 064
     Dates: end: 20150818
  8. PROZAC [Suspect]
     Active Substance: FLUOXETINE HYDROCHLORIDE
     Dosage: 20 MG, 1X/DAY
     Route: 064
     Dates: end: 20150818
  9. TRIATEC [Suspect]
     Active Substance: RAMIPRIL
     Dosage: 2 DF, UNK
     Route: 064
     Dates: end: 20150220
  10. ASPEGIC [Suspect]
     Active Substance: ASPIRIN DL-LYSINE
     Dosage: 100 MG, 1X/DAY
     Route: 064
     Dates: end: 20150818
  11. INEGY [Suspect]
     Active Substance: EZETIMIBE\SIMVASTATIN
     Dosage: UNK
     Route: 064
     Dates: end: 20150220
  12. NEORAL [Suspect]
     Active Substance: CYCLOSPORINE
     Dosage: 200 MG, 2X/DAY
     Route: 064
     Dates: start: 20150220, end: 20150818
  13. INSULIN [Suspect]
     Active Substance: INSULIN NOS
     Dosage: UNK
     Route: 064
     Dates: start: 20150220, end: 20150818
  14. ROVAMYCINE [Suspect]
     Active Substance: SPIRAMYCIN
     Dosage: UNK
     Route: 064
     Dates: end: 20150818

REACTIONS (4)
  - Maternal exposure during pregnancy [Unknown]
  - Dysmorphism [Not Recovered/Not Resolved]
  - Talipes [Not Recovered/Not Resolved]
  - Congenital musculoskeletal anomaly [Not Recovered/Not Resolved]
